FAERS Safety Report 13344301 (Version 2)
Quarter: 2017Q2

REPORT INFORMATION
  Report Type: Report from Study
  Country: None (occurrence: US)
  Receive Date: 20170317
  Receipt Date: 20170428
  Transmission Date: 20170830
  Serious: Yes (Hospitalization, Other)
  Sender: FDA-Public Use
  Company Number: US-ABBVIE-17K-163-1902676-00

PATIENT
  Sex: Female
  Weight: 99.88 kg

DRUGS (9)
  1. ADVAIR HFA [Concomitant]
     Active Substance: FLUTICASONE PROPIONATE\SALMETEROL XINAFOATE
     Indication: CHRONIC OBSTRUCTIVE PULMONARY DISEASE
  2. HUMIRA [Suspect]
     Active Substance: ADALIMUMAB
     Indication: RHEUMATOID ARTHRITIS
     Route: 058
     Dates: start: 2008, end: 200903
  3. PREDNISONE. [Concomitant]
     Active Substance: PREDNISONE
     Indication: RHEUMATOID ARTHRITIS
  4. ADVAIR HFA [Concomitant]
     Active Substance: FLUTICASONE PROPIONATE\SALMETEROL XINAFOATE
     Indication: ASTHMA
  5. TRAMADOL. [Concomitant]
     Active Substance: TRAMADOL
     Indication: PRODUCT USED FOR UNKNOWN INDICATION
  6. RESTASIS [Concomitant]
     Active Substance: CYCLOSPORINE
     Indication: DRY EYE
  7. HUMIRA [Suspect]
     Active Substance: ADALIMUMAB
     Route: 058
     Dates: start: 20170407
  8. VENTOLIN [Concomitant]
     Active Substance: ALBUTEROL SULFATE
     Indication: CHRONIC OBSTRUCTIVE PULMONARY DISEASE
  9. VENTOLIN [Concomitant]
     Active Substance: ALBUTEROL SULFATE
     Indication: ASTHMA

REACTIONS (16)
  - Coma [Recovered/Resolved]
  - Pulmonary mass [Recovered/Resolved]
  - Intervertebral disc protrusion [Recovered/Resolved]
  - Fall [Recovered/Resolved]
  - Abasia [Recovered/Resolved]
  - Intervertebral disc protrusion [Recovered/Resolved]
  - Pleural effusion [Recovered/Resolved]
  - Nerve compression [Recovered/Resolved]
  - Amnesia [Not Recovered/Not Resolved]
  - Weight decreased [Recovered/Resolved]
  - Sinusitis [Recovered/Resolved]
  - Nosocomial infection [Recovered/Resolved]
  - Weight increased [Not Recovered/Not Resolved]
  - Incoherent [Recovered/Resolved]
  - Hair colour changes [Not Recovered/Not Resolved]
  - Cardiac arrest [Recovered/Resolved]

NARRATIVE: CASE EVENT DATE: 2008
